FAERS Safety Report 8784272 (Version 2)
Quarter: 2013Q2

REPORT INFORMATION
  Report Type: Spontaneous
  Country: US (occurrence: US)
  Receive Date: 20120913
  Receipt Date: 20130417
  Transmission Date: 20140414
  Serious: Yes (Hospitalization, Disabling, Other)
  Sender: FDA-Public Use
  Company Number: US-009507513-1206USA00649

PATIENT
  Sex: Female
  Weight: 53.52 kg

DRUGS (19)
  1. FOSAMAX [Suspect]
     Indication: OSTEOPOROSIS
     Dosage: 70 MG, QW
     Route: 048
     Dates: end: 2005
  2. FOSAMAX PLUS D [Suspect]
     Indication: OSTEOPOROSIS
     Dosage: 70 MG, QW
     Route: 048
     Dates: start: 2005, end: 2009
  3. FOSAMAX PLUS D [Suspect]
     Dosage: 70MG-2800 IU
     Route: 048
     Dates: start: 20051010
  4. CORTICOSTEROIDS (UNSPECIFIED) [Concomitant]
     Dosage: UNK
     Dates: start: 1960, end: 2011
  5. SELECTIVE ESTROGEN RECEPTOR MODULATOR (UNSPECIFIED) [Concomitant]
     Dosage: UNK
     Dates: start: 1990, end: 2002
  6. CENTRUM SILVER [Concomitant]
     Dosage: 1 DF, QD
     Dates: start: 1980
  7. CALTRATE WITH VITAMIN D [Concomitant]
     Dosage: 600-1200 MG,QD
     Dates: start: 1980
  8. OSTEO-BI-FLEX [Concomitant]
     Dosage: 1 DF, QD
     Dates: start: 2000
  9. SYNTHROID [Concomitant]
     Indication: HYPOTHYROIDISM
     Dosage: 25-150 MCG, QD
  10. NEXIUM [Concomitant]
     Indication: GASTROOESOPHAGEAL REFLUX DISEASE
     Dosage: 40-80 MG QD
     Dates: start: 2002
  11. NEXIUM [Concomitant]
     Indication: ASTHMA
  12. PROTONIX [Concomitant]
     Indication: GASTROOESOPHAGEAL REFLUX DISEASE
     Dosage: 40 MG, QD
     Dates: start: 2001, end: 2005
  13. ALENDRONATE SODIUM [Suspect]
     Dosage: 70 MG, UNK
     Dates: start: 20080703
  14. RECLAST [Concomitant]
     Indication: OSTEOPOROSIS
     Dosage: 5 MG, YEARLY IV
     Dates: start: 2008
  15. FORTEO [Concomitant]
     Indication: OSTEOPOROSIS
     Dosage: 20 MICROGRAM, QD
     Route: 058
     Dates: start: 200309, end: 2006
  16. ALLEGRA [Concomitant]
     Indication: SEASONAL ALLERGY
     Dosage: 180 MG, QD
     Dates: start: 2004
  17. IPRATROPIUM BROMIDE [Concomitant]
     Indication: SEASONAL ALLERGY
     Dosage: 2 SPRAYS, TID
     Route: 045
     Dates: start: 200607
  18. CALCIUM CARBONATE (+) VITAMIN D (UNSPECIFIED) [Concomitant]
     Indication: OSTEOPOROSIS
     Dosage: 600 MG, BID
  19. EVISTA [Concomitant]
     Indication: OSTEOPOROSIS
     Dosage: 60 MG, QD

REACTIONS (84)
  - Closed fracture manipulation [Not Recovered/Not Resolved]
  - Incisional drainage [Unknown]
  - Fall [Unknown]
  - Ulna fracture [Unknown]
  - Radius fracture [Unknown]
  - Ulna fracture [Unknown]
  - Periodontal operation [Unknown]
  - Meniscus removal [Unknown]
  - Meniscus injury [Unknown]
  - Chondroplasty [Unknown]
  - Articular disc disorder [Unknown]
  - Cardiomegaly [Unknown]
  - Pneumonia [Unknown]
  - Hip arthroplasty [Unknown]
  - Femur fracture [Not Recovered/Not Resolved]
  - Gingival disorder [Unknown]
  - Fall [Unknown]
  - Hand fracture [Unknown]
  - Sleep disorder [Unknown]
  - Asthma [Unknown]
  - Hypertension [Unknown]
  - Blood potassium decreased [Unknown]
  - Fluid retention [Unknown]
  - Depression [Unknown]
  - Anxiety [Unknown]
  - Conjunctivitis infective [Unknown]
  - Conjunctivitis infective [Unknown]
  - Fungal skin infection [Unknown]
  - Onychomycosis [Unknown]
  - Bronchitis [Unknown]
  - Respiratory tract infection [Unknown]
  - Large intestine polyp [Unknown]
  - Duodenitis [Unknown]
  - Diverticulum intestinal [Unknown]
  - Fatigue [Unknown]
  - Joint stiffness [Unknown]
  - Herpes zoster [Unknown]
  - Osteoarthritis [Unknown]
  - Patellofemoral pain syndrome [Unknown]
  - Mass [Unknown]
  - Urethral prolapse [Unknown]
  - Asthma [Unknown]
  - Post procedural haemorrhage [Unknown]
  - Respirovirus test positive [Unknown]
  - Haemoptysis [Unknown]
  - Bordetella infection [Unknown]
  - Drug administration error [Unknown]
  - Device failure [Unknown]
  - Spinal compression fracture [Unknown]
  - Kyphosis [Unknown]
  - Scoliosis [Unknown]
  - Vitamin D deficiency [Unknown]
  - Osteopenia [Unknown]
  - Pneumonia bacterial [Unknown]
  - Bronchitis bacterial [Unknown]
  - Blood pressure increased [Unknown]
  - Abnormal loss of weight [Unknown]
  - Bronchospasm [Unknown]
  - Bronchitis [Unknown]
  - Asthma [Unknown]
  - Fall [Unknown]
  - Mitral valve incompetence [Unknown]
  - Tricuspid valve incompetence [Unknown]
  - Pulmonary valve incompetence [Unknown]
  - Pulmonary hypertension [Unknown]
  - Pericardial effusion [Unknown]
  - Bronchitis [Unknown]
  - Fall [Unknown]
  - Contusion [Unknown]
  - Musculoskeletal stiffness [Unknown]
  - Chronic respiratory disease [Not Recovered/Not Resolved]
  - Osteoarthritis [Unknown]
  - Hiatus hernia [Unknown]
  - Knee deformity [Unknown]
  - Cardiac failure congestive [Not Recovered/Not Resolved]
  - Mycobacterium avium complex infection [Not Recovered/Not Resolved]
  - Respiratory tract infection [Unknown]
  - Asthma [Unknown]
  - Emotional disorder [Unknown]
  - Dental plaque [Unknown]
  - Gastrointestinal malformation [Unknown]
  - Back pain [Unknown]
  - Local swelling [Unknown]
  - Drug ineffective [Unknown]
